FAERS Safety Report 9111411 (Version 1)
Quarter: 2013Q1

REPORT INFORMATION
  Report Type: Spontaneous
  Country: US (occurrence: US)
  Receive Date: 20130219
  Receipt Date: 20130219
  Transmission Date: 20140127
  Serious: No
  Sender: FDA-Public Use
  Company Number: US-BRISTOL-MYERS SQUIBB COMPANY-17101098

PATIENT
  Age: 66 Year
  Sex: Female
  Weight: 120.63 kg

DRUGS (16)
  1. ORENCIA [Suspect]
     Indication: RHEUMATOID ARTHRITIS
     Dosage: 1 DF = 125MG/ML,HELD FOR 3 MONTHS + RESTR ON 1NOV12
     Route: 058
     Dates: start: 201206
  2. AMBIEN [Concomitant]
  3. CALCIUM [Concomitant]
  4. CELEBREX [Concomitant]
  5. CITALOPRAM [Concomitant]
  6. ENALAPRIL [Concomitant]
  7. FLONASE [Concomitant]
  8. LEFLUNOMIDE [Concomitant]
  9. NEXIUM [Concomitant]
  10. OXYCODONE [Concomitant]
  11. PLAQUENIL [Concomitant]
  12. PRILOSEC [Concomitant]
  13. SKELAXIN [Concomitant]
  14. TOPIRAMATE [Concomitant]
  15. ULTRAM [Concomitant]
  16. VITAMIN D [Concomitant]

REACTIONS (1)
  - Urinary tract infection [Unknown]
